FAERS Safety Report 10466147 (Version 1)
Quarter: 2014Q3

REPORT INFORMATION
  Report Type: Spontaneous
  Country: US (occurrence: US)
  Receive Date: 20140922
  Receipt Date: 20140922
  Transmission Date: 20150326
  Serious: Yes (Hospitalization)
  Sender: FDA-Public Use
  Company Number: US-BRISTOL-MYERS SQUIBB COMPANY-21405683

PATIENT
  Age: 70 Year
  Sex: Female
  Weight: 56.69 kg

DRUGS (1)
  1. BYETTA [Suspect]
     Active Substance: EXENATIDE
     Dosage: INJECTION
     Route: 058

REACTIONS (3)
  - Kidney infection [Unknown]
  - Cystitis [Unknown]
  - Renal failure chronic [Unknown]
